FAERS Safety Report 8590117-2 (Version None)
Quarter: 2012Q3

REPORT INFORMATION
  Report Type: 
  Country: None (occurrence: None)
  Receive Date: 20120813
  Receipt Date: 20120803
  Transmission Date: 20120928
  Serious: Yes (Hospitalization)
  Sender: FDA-Public Use
  Company Number: US-ABBOTT-12P-163-0965023-00

PATIENT

DRUGS (4)
  1. CHEMO [Concomitant]
     Indication: LYMPHOMA
     Dosage: 6 MONTHS
  2. LUPRON DEPOT [Suspect]
     Indication: ARTIFICIAL MENOPAUSE
     Dates: start: 20120206
  3. DECLINED LONG LIST OF MEDICATIONS [Concomitant]
     Indication: PRODUCT USED FOR UNKNOWN INDICATION
  4. LUPRON DEPOT [Suspect]
     Indication: INFERTILITY FEMALE

REACTIONS (2)
  - STEM CELL TRANSPLANT [None]
  - OFF LABEL USE [None]
